FAERS Safety Report 5665577-7 (Version None)
Quarter: 2008Q1

REPORT INFORMATION
  Report Type: 
  Country: None (occurrence: None)
  Receive Date: 20080314
  Receipt Date: 20071205
  Transmission Date: 20080703
  Serious: No
  Sender: FDA-Public Use
  Company Number: US-ABBOTT-07P-163-0428774-00

PATIENT
  Sex: Female
  Weight: 76.726 kg

DRUGS (1)
  1. HUMIRA [Suspect]
     Indication: RHEUMATOID ARTHRITIS
     Route: 058
     Dates: start: 20071119

REACTIONS (8)
  - ARTHRALGIA [None]
  - BURNING SENSATION [None]
  - INJECTION SITE BRUISING [None]
  - INJECTION SITE INFLAMMATION [None]
  - INJECTION SITE URTICARIA [None]
  - NASOPHARYNGITIS [None]
  - RASH [None]
  - URTICARIA [None]
